FAERS Safety Report 7481779-1 (Version None)
Quarter: 2011Q2

REPORT INFORMATION
  Report Type: 
  Country: None (occurrence: None)
  Receive Date: 20110506
  Receipt Date: 20110426
  Transmission Date: 20111010
  Serious: Yes (Other)
  Sender: FDA-Public Use
  Company Number: IPC201104-000788

PATIENT

DRUGS (4)
  1. METOCLOPRAMIDE HYDROCHLORIDE [Suspect]
     Dosage: ORAL
     Route: 048
     Dates: start: 19980101, end: 20100101
  2. METOCLOPRAMIDE [Suspect]
     Dosage: ORAL
     Route: 048
     Dates: start: 19980101, end: 20100101
  3. METOCLOPRAMIDE [Suspect]
     Dosage: ORAL
     Route: 048
     Dates: start: 19980101, end: 20100101
  4. REGLAN [Suspect]
     Dosage: ORAL
     Route: 048
     Dates: start: 19980101, end: 20100101

REACTIONS (5)
  - TARDIVE DYSKINESIA [None]
  - RESTLESS LEGS SYNDROME [None]
  - PARKINSONISM [None]
  - EXTRAPYRAMIDAL DISORDER [None]
  - TREMOR [None]
